FAERS Safety Report 6269751-0 (Version None)
Quarter: 2009Q3

REPORT INFORMATION
  Report Type: 
  Country: None (occurrence: None)
  Receive Date: 20090716
  Receipt Date: 20090708
  Transmission Date: 20100115
  Serious: Yes (Other)
  Sender: FDA-Public Use
  Company Number: US-ASTRAZENECA-2009UW13445

PATIENT
  Age: 41 Year
  Sex: Male
  Weight: 114.3 kg

DRUGS (6)
  1. SEROQUEL [Suspect]
     Indication: SCHIZOPHRENIA
     Dosage: 100 MG TO 600 MG PER DAY
     Route: 048
     Dates: start: 19980101, end: 20090301
  2. SEROQUEL [Suspect]
     Indication: BIPOLAR DISORDER
     Dosage: 100 MG TO 600 MG PER DAY
     Route: 048
     Dates: start: 19980101, end: 20090301
  3. SEROQUEL [Suspect]
     Indication: DEPRESSION
     Dosage: 100 MG TO 600 MG PER DAY
     Route: 048
     Dates: start: 19980101, end: 20090301
  4. TRIAVIL [Concomitant]
     Dates: start: 20060101
  5. ZOLOFT [Concomitant]
     Dates: start: 20080101
  6. VALIUM [Concomitant]
     Dates: start: 19980101, end: 20060101

REACTIONS (8)
  - ACCIDENT [None]
  - ARTHROPOD BITE [None]
  - BLOOD DISORDER [None]
  - DIABETIC COMPLICATION [None]
  - INFECTION [None]
  - MOVEMENT DISORDER [None]
  - OBESITY [None]
  - TYPE 2 DIABETES MELLITUS [None]
